FAERS Safety Report 9287964 (Version 1)
Quarter: 2013Q2

REPORT INFORMATION
  Report Type: Spontaneous
  Country: US (occurrence: None)
  Receive Date: 20130513
  Receipt Date: 20130513
  Transmission Date: 20140414
  Serious: Yes (Life-Threatening, Hospitalization, Disabling)
  Sender: FDA-Public Use
  Company Number: None

PATIENT
  Age: 79 Year
  Sex: Female
  Weight: 63.05 kg

DRUGS (1)
  1. DAPSONE [Suspect]
     Indication: RENAL DISORDER
     Dates: start: 20120828, end: 201211

REACTIONS (5)
  - Renal failure [None]
  - Pulmonary thrombosis [None]
  - Thrombosis [None]
  - Blood potassium increased [None]
  - Dialysis [None]
